FAERS Safety Report 9771155 (Version 2)
Quarter: 2014Q2

REPORT INFORMATION
  Report Type: Spontaneous
  Country: DE (occurrence: DE)
  Receive Date: 20131218
  Receipt Date: 20140425
  Transmission Date: 20141212
  Serious: Yes (Other)
  Sender: FDA-Public Use
  Company Number: GXKR2013DE003821

PATIENT
  Age: 59 Year
  Sex: Female
  Weight: 61 kg

DRUGS (1)
  1. ATORVASTATIN HEXAL [Suspect]
     Indication: HYPERCHOLESTEROLAEMIA
     Dosage: 10 MG, QD
     Route: 048
     Dates: start: 20131108, end: 20131123

REACTIONS (5)
  - Vitreous haemorrhage [Recovering/Resolving]
  - Retinal haemorrhage [Recovering/Resolving]
  - Vitreous floaters [Recovering/Resolving]
  - Vitreous adhesions [Recovering/Resolving]
  - Photopsia [Recovering/Resolving]
